FAERS Safety Report 6265099-9 (Version None)
Quarter: 2009Q3

REPORT INFORMATION
  Report Type: 
  Country: None (occurrence: None)
  Receive Date: 20090713
  Receipt Date: 20090703
  Transmission Date: 20100115
  Serious: Yes (Other)
  Sender: FDA-Public Use
  Company Number: JP-PFIZER INC-2009237365

PATIENT

DRUGS (4)
  1. DIFLUCAN [Suspect]
  2. CARBIDOPA AND LEVODOPA [Concomitant]
     Route: 048
  3. CABASER [Concomitant]
     Route: 048
  4. SYMMETREL [Concomitant]
     Route: 048

REACTIONS (1)
  - DYSKINESIA [None]
